FAERS Safety Report 7365938-4 (Version None)
Quarter: 2011Q1

REPORT INFORMATION
  Report Type: 
  Country: None (occurrence: None)
  Receive Date: 20110322
  Receipt Date: 20110222
  Transmission Date: 20110831
  Serious: No
  Sender: FDA-Public Use
  Company Number: US-B.I. PHARMACEUTICALS,INC./RIDGEFIELD-2011-BP-02156BP

PATIENT
  Sex: Female

DRUGS (9)
  1. ATIVAN [Concomitant]
     Indication: REFLUX OESOPHAGITIS
     Dosage: 1-3 TABLETS
     Dates: start: 19900101
  2. CELEBREX [Concomitant]
     Indication: PAIN
     Dosage: PRN
     Dates: start: 19900101
  3. COUMADIN [Concomitant]
     Dosage: 4 MG
  4. LANOXIN [Concomitant]
     Dosage: 0.125 MG
     Dates: start: 20020101
  5. PRADAXA [Suspect]
     Indication: ATRIAL FIBRILLATION
     Dosage: 300 MG
     Route: 048
     Dates: start: 20110121, end: 20110122
  6. ACTONEL [Concomitant]
     Indication: OSTEOPOROSIS
  7. METOPROLOL SUCCINATE EXTENDED RELEASE [Concomitant]
     Indication: HYPERTENSION
     Dosage: 75 MG
     Dates: start: 20000101
  8. NEXIUM [Concomitant]
     Indication: REFLUX OESOPHAGITIS
     Dosage: 40 MG
     Dates: start: 20100101
  9. FUROSEMIDE [Concomitant]
     Dosage: AS NEEDED

REACTIONS (10)
  - ABDOMINAL PAIN UPPER [None]
  - CONSTIPATION [None]
  - FLATULENCE [None]
  - OESOPHAGEAL PAIN [None]
  - ASTHENIA [None]
  - GASTRIC DISORDER [None]
  - DYSPNOEA [None]
  - APHAGIA [None]
  - DIARRHOEA [None]
  - MALAISE [None]
